FAERS Safety Report 5823905-3 (Version None)
Quarter: 2008Q3

REPORT INFORMATION
  Report Type: 
  Country: None (occurrence: None)
  Receive Date: 20080724
  Receipt Date: 20080709
  Transmission Date: 20090109
  Serious: Yes (Death)
  Sender: FDA-Public Use
  Company Number: 14936

PATIENT
  Age: 57 Year
  Sex: Male

DRUGS (1)
  1. MORPHINE SULFATE [Suspect]
     Indication: CANCER PAIN
     Dates: start: 20050201, end: 20071231

REACTIONS (2)
  - DEATH [None]
  - PHARMACEUTICAL PRODUCT COMPLAINT [None]
